FAERS Safety Report 9345888 (Version 3)
Quarter: 2013Q3

REPORT INFORMATION
  Report Type: Spontaneous
  Country: IT (occurrence: IT)
  Receive Date: 20130613
  Receipt Date: 20130710
  Transmission Date: 20140515
  Serious: Yes (Other)
  Sender: FDA-Public Use
  Company Number: IT-ASTRAZENECA-2013SE40921

PATIENT
  Age: 90 Year
  Sex: Female

DRUGS (10)
  1. BRILIQUE [Suspect]
     Indication: ACUTE MYOCARDIAL INFARCTION
     Route: 048
     Dates: start: 20121126, end: 20130430
  2. PEPTAZOL(PANTOPRAZOLE) [Concomitant]
     Dosage: 25 MG, ONE DF, UNKNOWN FREQUENCY
  3. TORVAST(ATORVASTATINE) [Concomitant]
     Dosage: 80 MG, ONE DF , UNKNOWN FREQUENCY
  4. TAPAZOLE(METHIMAZOLE) [Concomitant]
  5. LASIX(FUROSEMIDE) [Concomitant]
     Indication: HYPERTENSION
     Dosage: 25 MG, 2 DF, TWO TIMES A DAY
  6. ZYLORIC(ALLOPURINOL) [Concomitant]
     Dosage: 300 MG, ONE DF, UNKNOWN FREQUENCY
  7. ASA [Concomitant]
     Dosage: 100 MG, ONE DF, DAILY
  8. BISOPROLOL [Concomitant]
     Dosage: 1,25 MG, ONE DF, UNKNOWN FREQUENCY
  9. ALDACTONE(SPIRONOLACTONE) [Concomitant]
     Dosage: 25 MG, ONE DF, UNKNOWN FREQUENCY
  10. ELAN(ISOSORBIDE) [Concomitant]
     Dosage: 40 MG, ONE DF TWO TIMES A DAY

REACTIONS (2)
  - Epistaxis [Recovered/Resolved]
  - Off label use [Recovered/Resolved]
